FAERS Safety Report 8377452-8 (Version None)
Quarter: 2012Q2

REPORT INFORMATION
  Report Type: 
  Country: None (occurrence: None)
  Receive Date: 20120522
  Receipt Date: 20120222
  Transmission Date: 20120825
  Serious: No
  Sender: FDA-Public Use
  Company Number: US-ASTRAZENECA-2012SE12760

PATIENT
  Sex: Female

DRUGS (2)
  1. ACIPHEX [Concomitant]
  2. PRILOSEC [Suspect]
     Route: 048

REACTIONS (5)
  - ERUCTATION [None]
  - MALAISE [None]
  - ASTHENIA [None]
  - DRUG INEFFECTIVE [None]
  - WEIGHT DECREASED [None]
